FAERS Safety Report 8540641-3 (Version None)
Quarter: 2012Q3

REPORT INFORMATION
  Report Type: 
  Country: None (occurrence: None)
  Receive Date: 20120726
  Receipt Date: 20120718
  Transmission Date: 20120928
  Serious: Yes (Other)
  Sender: FDA-Public Use
  Company Number: GB-ALLERGAN-1209992US

PATIENT
  Age: 59 Year
  Sex: Female

DRUGS (6)
  1. PROPOFOL [Concomitant]
     Indication: ANAESTHESIA
  2. FENTANYL [Concomitant]
     Indication: ANAESTHESIA
  3. BOTULINUM TOXIN TYPE A [Suspect]
     Dosage: 200 UNITS, SINGLE
     Route: 030
  4. BOTULINUM TOXIN TYPE A [Suspect]
     Indication: HYPERTONIC BLADDER
     Dosage: 200 UNITS, SINGLE
     Route: 030
  5. BOTULINUM TOXIN TYPE A [Suspect]
     Dosage: 200 UNITS, SINGLE
     Route: 030
  6. CO-AMOXYCLAV [Concomitant]
     Indication: PROPHYLAXIS
     Route: 042

REACTIONS (2)
  - HEPATOTOXICITY [None]
  - LIVER FUNCTION TEST ABNORMAL [None]
